FAERS Safety Report 7047901-6 (Version None)
Quarter: 2010Q4

REPORT INFORMATION
  Report Type: 
  Country: None (occurrence: None)
  Receive Date: 20101015
  Receipt Date: 20101005
  Transmission Date: 20110411
  Serious: Yes (Hospitalization)
  Sender: FDA-Public Use
  Company Number: FR-JNJFOC-20101002385

PATIENT
  Sex: Male

DRUGS (4)
  1. STELARA [Suspect]
     Indication: PSORIASIS
     Route: 058
  2. DEPAKOTE [Concomitant]
  3. TERCIAN [Concomitant]
  4. ANTIPSYCHOTICS [Concomitant]

REACTIONS (1)
  - SUICIDE ATTEMPT [None]
